FAERS Safety Report 5835373-6 (Version None)
Quarter: 2008Q3

REPORT INFORMATION
  Report Type: 
  Country: None (occurrence: None)
  Receive Date: 20080806
  Receipt Date: 20080801
  Transmission Date: 20090109
  Serious: Yes (Hospitalization)
  Sender: FDA-Public Use
  Company Number: DE-MERCK-0808DEU00001

PATIENT
  Age: 77 Year
  Sex: Female

DRUGS (5)
  1. JANUVIA [Suspect]
     Indication: TYPE 2 DIABETES MELLITUS
     Route: 048
     Dates: start: 20080520, end: 20080601
  2. SPIRONOLACTONE [Concomitant]
     Route: 048
  3. AMIODARONE HYDROCHLORIDE [Concomitant]
     Route: 048
  4. MOXONIDINE [Concomitant]
     Indication: HYPERTENSION
     Route: 048
  5. IRBESARTAN [Concomitant]
     Route: 048

REACTIONS (5)
  - DRUG INTOLERANCE [None]
  - NAUSEA [None]
  - PULMONARY MASS [None]
  - VOMITING [None]
  - WEIGHT DECREASED [None]
